FAERS Safety Report 4421674-5 (Version None)
Quarter: 2004Q3

REPORT INFORMATION
  Report Type: 
  Country: None (occurrence: None)
  Receive Date: 20040804
  Receipt Date: 20040722
  Transmission Date: 20050211
  Serious: Yes (Other)
  Sender: FDA-Public Use
  Company Number: T02-USA-00272-01

PATIENT
  Age: 3 Month
  Sex: Male
  Weight: 0.72 kg

DRUGS (2)
  1. INFASURF PRESERVATIVE FREE [Suspect]
     Indication: NEONATAL RESPIRATORY DISTRESS SYNDROME
  2. SURVANTA [Suspect]
     Indication: NEONATAL RESPIRATORY DISTRESS SYNDROME

REACTIONS (2)
  - LARYNGEAL STENOSIS [None]
  - STRIDOR [None]
